FAERS Safety Report 9769019 (Version 1)
Quarter: 2013Q4

REPORT INFORMATION
  Report Type: Spontaneous
  Country: US (occurrence: None)
  Receive Date: 20131217
  Receipt Date: 20131217
  Transmission Date: 20140711
  Serious: Yes (Disabling)
  Sender: FDA-Public Use
  Company Number: None

PATIENT
  Sex: Male
  Weight: 73.94 kg

DRUGS (1)
  1. VERSED [Suspect]
     Indication: PAIN

REACTIONS (3)
  - Treatment noncompliance [None]
  - Hypotension [None]
  - Pain [None]
